FAERS Safety Report 7151847-2 (Version None)
Quarter: 2010Q4

REPORT INFORMATION
  Report Type: 
  Country: None (occurrence: None)
  Receive Date: 20101210
  Receipt Date: 20101202
  Transmission Date: 20110411
  Serious: Yes (Hospitalization, Other)
  Sender: FDA-Public Use
  Company Number: US-ABBOTT-10P-163-0689423-00

PATIENT
  Sex: Female
  Weight: 99.88 kg

DRUGS (1)
  1. HUMIRA [Suspect]
     Indication: GUTTATE PSORIASIS
     Route: 058
     Dates: start: 20100301

REACTIONS (4)
  - HEMIPLEGIA [None]
  - MIGRAINE [None]
  - PSORIASIS [None]
  - SYNCOPE [None]
